FAERS Safety Report 9747178 (Version 3)
Quarter: 2014Q1

REPORT INFORMATION
  Report Type: Spontaneous
  Country: TW (occurrence: TW)
  Receive Date: 20131212
  Receipt Date: 20140106
  Transmission Date: 20141002
  Serious: Yes (Hospitalization, Other)
  Sender: FDA-Public Use
  Company Number: TW-AMGEN-TWNSP2013087065

PATIENT
  Age: 61 Year
  Sex: Male

DRUGS (13)
  1. ENBREL [Suspect]
     Indication: RHEUMATOID ARTHRITIS
     Dosage: 25 MG, 2X/WEEK
     Route: 058
     Dates: start: 20040909, end: 20131121
  2. PREDNISOLONE [Suspect]
     Indication: PRODUCT USED FOR UNKNOWN INDICATION
     Dosage: UNK, BID
     Route: 065
  3. ULTRACET [Concomitant]
     Dosage: 0.5 DF, 4X/DAY
  4. FOLIC ACID [Concomitant]
     Dosage: 1 DF, 2X/DAY
  5. FOSAMAX [Concomitant]
     Dosage: 1 DF, WEEKLY
  6. AMLODIPINE [Concomitant]
     Dosage: 5 MG, 1X/DAY
  7. CILOSTAZOL [Concomitant]
     Dosage: 50 MG, 2X/DAY
  8. RANITIDINE [Concomitant]
     Dosage: 150 MG, 2X/DAY
  9. BISOPROLOL [Concomitant]
     Dosage: 5 MG, 2X/DAY
  10. TAMSULOSIN [Concomitant]
     Dosage: 0.4 MG, 1X/DAY
  11. ESOMEPRAZOLE [Concomitant]
     Dosage: 40 MG, 1X/DAY
  12. DIMETHYLPOLYSILOXANE [Concomitant]
     Dosage: 40 MG, 2X/DAY
  13. STROCAIN                           /00130301/ [Concomitant]
     Dosage: 1 DF, 2X/DAY

REACTIONS (44)
  - Oesophageal cancer metastatic [Not Recovered/Not Resolved]
  - Barrett^s oesophagus [Unknown]
  - Bronchiectasis [Unknown]
  - Spinal compression fracture [Unknown]
  - Pulmonary fibrosis [Unknown]
  - Pericardial effusion [Unknown]
  - Pulmonary congestion [Unknown]
  - Pulmonary oedema [Unknown]
  - Pneumomediastinum [Recovering/Resolving]
  - Hypernatraemia [Recovering/Resolving]
  - Impaired healing [Unknown]
  - Abdominal distension [Unknown]
  - Wheezing [Recovering/Resolving]
  - Abdominal hernia [Unknown]
  - Hypokalaemia [Recovering/Resolving]
  - Dehydration [Unknown]
  - Hypophagia [Unknown]
  - Blood calcium abnormal [Unknown]
  - Urine sodium abnormal [Unknown]
  - White blood cells urine positive [Unknown]
  - Red blood cells urine [Unknown]
  - Alanine aminotransferase abnormal [Unknown]
  - C-reactive protein abnormal [Unknown]
  - Blood osmolarity abnormal [Unknown]
  - Haemoglobin abnormal [Unknown]
  - Haematocrit abnormal [Unknown]
  - Red blood cell count abnormal [Unknown]
  - Red cell distribution width abnormal [Unknown]
  - Band neutrophil count increased [Unknown]
  - Neutrophil percentage abnormal [Unknown]
  - Lymphocyte count abnormal [Unknown]
  - Monocyte count abnormal [Unknown]
  - Lung disorder [Unknown]
  - Aortic valve calcification [Unknown]
  - Aortic disorder [Unknown]
  - Arterial disorder [Unknown]
  - Spinal osteoarthritis [Unknown]
  - Atelectasis [Unknown]
  - Arteriosclerosis [Unknown]
  - Hepatic calcification [Unknown]
  - Intervertebral disc disorder [Unknown]
  - Cardiomegaly [Unknown]
  - Subcutaneous emphysema [Recovering/Resolving]
  - Pseudomonas infection [Unknown]
